FAERS Safety Report 21409717 (Version 1)
Quarter: 2022Q4

REPORT INFORMATION
  Report Type: Report from Study
  Country: US (occurrence: US)
  Receive Date: 20221005
  Receipt Date: 20221005
  Transmission Date: 20230113
  Serious: No
  Sender: FDA-Public Use
  Company Number: US-ABBVIE-22K-163-4448292-00

PATIENT
  Age: 63 Year
  Sex: Female

DRUGS (6)
  1. HUMIRA [Suspect]
     Active Substance: ADALIMUMAB
     Indication: Rheumatoid arthritis
     Dosage: CITRATE FREE
     Route: 058
  2. HUMIRA [Suspect]
     Active Substance: ADALIMUMAB
     Route: 058
  3. PREDNISONE [Concomitant]
     Active Substance: PREDNISONE
     Indication: Product used for unknown indication
  4. Pfizer [Concomitant]
     Indication: COVID-19 immunisation
     Dosage: 1ST DOSE?ONCE
     Route: 030
     Dates: start: 20220201, end: 20220201
  5. Pfizer [Concomitant]
     Indication: COVID-19 immunisation
     Dosage: 2ND DOSE?ONCE
     Route: 030
     Dates: start: 20210301, end: 20210301
  6. Pfizer [Concomitant]
     Indication: COVID-19 immunisation
     Dosage: 3RD DOSE?ONCE
     Route: 030
     Dates: start: 20210601, end: 20210601

REACTIONS (4)
  - Drainage [Recovering/Resolving]
  - Sinusitis [Recovering/Resolving]
  - Infection [Not Recovered/Not Resolved]
  - Bronchitis [Recovering/Resolving]

NARRATIVE: CASE EVENT DATE: 20220701
